FAERS Safety Report 6104906-7 (Version None)
Quarter: 2009Q1

REPORT INFORMATION
  Report Type: 
  Country: None (occurrence: None)
  Receive Date: 20090306
  Receipt Date: 20090226
  Transmission Date: 20090719
  Serious: Yes (Other)
  Sender: FDA-Public Use
  Company Number: US-ASTRAZENECA-2009UW05464

PATIENT
  Age: 54 Year
  Sex: Female
  Weight: 99.8 kg

DRUGS (23)
  1. CRESTOR [Suspect]
     Indication: BLOOD CHOLESTEROL INCREASED
     Route: 048
     Dates: end: 20090220
  2. NASACORT [Concomitant]
     Dosage: PRN
     Route: 045
  3. NEXIUM [Concomitant]
     Route: 048
  4. OXCARBAZEPINE [Concomitant]
  5. ZOLPIDEM [Concomitant]
  6. ZYRTEC [Concomitant]
  7. SPIRIVA [Concomitant]
     Dosage: PRN
  8. MIRALAX [Concomitant]
     Dosage: PRN
  9. NITROGLYCERIN [Concomitant]
  10. PLAVIX [Concomitant]
  11. TOPICAL MEDICATIONS FOR PSORIASIS [Concomitant]
  12. ADVAIR DISKUS 100/50 [Concomitant]
  13. ALBUTEROL [Concomitant]
     Route: 055
  14. ASPIRIN [Concomitant]
     Dosage: 325 MG
  15. AMLODIPINE [Concomitant]
  16. BUPROPION HCL [Concomitant]
     Indication: TOBACCO USER
  17. CLONAZEPAM [Concomitant]
     Dosage: =
  18. COLACE [Concomitant]
     Dosage: =
  19. FENTANYL-100 [Concomitant]
     Indication: OSTEOPOROSIS
  20. DUROSEMIDE [Concomitant]
  21. NEURONTIN [Concomitant]
  22. LEVOTHYROXINE SODIUM [Concomitant]
  23. LISINOPRIL [Concomitant]

REACTIONS (6)
  - CAROTID ARTERY STENT INSERTION [None]
  - ENZYME ABNORMALITY [None]
  - MUSCULOSKELETAL STIFFNESS [None]
  - MYALGIA [None]
  - PARAESTHESIA [None]
  - WEIGHT INCREASED [None]
